FAERS Safety Report 7690732-4 (Version None)
Quarter: 2011Q3

REPORT INFORMATION
  Report Type: 
  Country: None (occurrence: None)
  Receive Date: 20110818
  Receipt Date: 20110816
  Transmission Date: 20111222
  Serious: Yes (Other)
  Sender: FDA-Public Use
  Company Number: DE-ABBOTT-11P-062-0715709-00

PATIENT
  Sex: Male

DRUGS (6)
  1. CICLOSPORIN A(C.A) [Concomitant]
     Dates: start: 20110327
  2. HUMIRA [Suspect]
     Indication: RHEUMATOID ARTHRITIS
     Route: 058
     Dates: start: 20100201, end: 20101101
  3. CICLOSPORIN A(C.A) [Concomitant]
     Dates: start: 20100826
  4. METHOTREXATE [Concomitant]
     Indication: RHEUMATOID ARTHRITIS
     Route: 048
     Dates: start: 20100223
  5. CICLOSPORIN A(C.A) [Concomitant]
     Indication: RHEUMATOID ARTHRITIS
     Dosage: 150MG DAILY
     Route: 048
     Dates: start: 20100521
  6. PREDNISOLONE [Concomitant]
     Indication: RHEUMATOID ARTHRITIS
     Dosage: 7.5MG DAILY
     Route: 048
     Dates: start: 19920101

REACTIONS (3)
  - JOINT STIFFNESS [None]
  - DRUG INEFFECTIVE [None]
  - OSTEOARTHRITIS [None]
